FAERS Safety Report 4451149-9 (Version None)
Quarter: 2004Q3

REPORT INFORMATION
  Report Type: 
  Country: None (occurrence: None)
  Receive Date: 20040916
  Receipt Date: 20040820
  Transmission Date: 20050211
  Serious: Yes (Hospitalization, Disabling, Other)
  Sender: FDA-Public Use
  Company Number: 200418242GDDC

PATIENT
  Age: 75 Year
  Sex: Female
  Weight: 65 kg

DRUGS (15)
  1. CODE UNBROKEN [Suspect]
     Indication: MYOCARDIAL INFARCTION
     Dosage: DOSE: ENOX/PLACEBO BOLUS NOT GIVEN
  2. ASPIRIN [Suspect]
     Indication: MYOCARDIAL INFARCTION
     Route: 048
     Dates: start: 20040707
  3. STREPTOKINASE [Suspect]
     Indication: MYOCARDIAL INFARCTION
     Route: 042
     Dates: start: 20040707, end: 20040707
  4. SIMVASTATIN [Concomitant]
     Indication: MYOCARDIAL ISCHAEMIA
     Route: 048
     Dates: start: 20040708
  5. GTN [Concomitant]
     Indication: MYOCARDIAL ISCHAEMIA
     Route: 060
     Dates: start: 20040708
  6. THYROXINE [Concomitant]
     Indication: HYPOTHYROIDISM
     Route: 048
  7. PARACETAMOL [Concomitant]
     Route: 048
     Dates: start: 20040708, end: 20040720
  8. MORPHINE [Concomitant]
     Dosage: DOSE: 1-2
     Route: 042
     Dates: start: 20040708, end: 20040713
  9. MAXOLON [Concomitant]
     Indication: NAUSEA
     Route: 048
     Dates: start: 20040708, end: 20040717
  10. METOPROLOL [Concomitant]
     Indication: MYOCARDIAL ISCHAEMIA
     Route: 048
     Dates: start: 20040707, end: 20040707
  11. POTASSIUM [Concomitant]
     Route: 048
     Dates: start: 20040708, end: 20040715
  12. ONDANSETRON [Concomitant]
     Indication: NAUSEA
     Route: 042
     Dates: start: 20040708, end: 20040708
  13. CILAZAPRIL [Concomitant]
     Indication: MYOCARDIAL ISCHAEMIA
     Route: 048
     Dates: start: 20040709, end: 20040709
  14. DIAZEPAM [Concomitant]
     Indication: ANXIETY
     Route: 048
     Dates: start: 20040712, end: 20040712
  15. CANDESARTAN [Concomitant]
     Indication: MYOCARDIAL ISCHAEMIA
     Route: 048
     Dates: start: 20040712

REACTIONS (5)
  - CATHETER RELATED COMPLICATION [None]
  - CEREBRAL ARTERY EMBOLISM [None]
  - HEMIPARESIS [None]
  - PROCEDURAL COMPLICATION [None]
  - TRANSIENT ISCHAEMIC ATTACK [None]
